FAERS Safety Report 10648709 (Version 1)
Quarter: 2014Q4

REPORT INFORMATION
  Report Type: Spontaneous
  Country: US (occurrence: US)
  Receive Date: 20141212
  Receipt Date: 20141212
  Transmission Date: 20150529
  Serious: Yes (Other)
  Sender: FDA-Public Use
  Company Number: US-AMGEN-USASP2014095292

PATIENT
  Age: 78 Year
  Sex: Female

DRUGS (1)
  1. PROLIA [Suspect]
     Active Substance: DENOSUMAB
     Indication: OSTEOPOROSIS POSTMENOPAUSAL
     Route: 065

REACTIONS (6)
  - Fall [Unknown]
  - Femur fracture [Unknown]
  - Jaw disorder [Unknown]
  - Knee arthroplasty [Unknown]
  - Device failure [Unknown]
  - Tooth disorder [Unknown]
